FAERS Safety Report 21865020 (Version 1)
Quarter: 2023Q1

REPORT INFORMATION
  Report Type: Spontaneous
  Country: US (occurrence: US)
  Receive Date: 20230116
  Receipt Date: 20230116
  Transmission Date: 20230418
  Serious: No
  Sender: FDA-Public Use
  Company Number: US-FDC-2023USSPO00001

PATIENT
  Age: 80 Year
  Sex: Female

DRUGS (3)
  1. TIMOLOL MALEATE [Suspect]
     Active Substance: TIMOLOL MALEATE
     Indication: Intraocular pressure increased
     Dosage: TWICE A DAY, ONE DROP AT A TIME IN EACH EYE
     Route: 047
  2. TIMOLOL MALEATE [Suspect]
     Active Substance: TIMOLOL MALEATE
     Dosage: 02 DROPS IN THE MORNING AND 02 DROPS AT NIGHT
     Route: 047
  3. LATANOPROST [Concomitant]
     Active Substance: LATANOPROST
     Indication: Product used for unknown indication
     Dosage: TWICE A DAY AT NIGHT ONE DROP EACH EYE
     Route: 065

REACTIONS (3)
  - Incorrect dose administered by product [Unknown]
  - Product container issue [Unknown]
  - Product use issue [Unknown]
